FAERS Safety Report 5914901-6 (Version None)
Quarter: 2008Q4

REPORT INFORMATION
  Report Type: 
  Country: None (occurrence: None)
  Receive Date: 20081008
  Receipt Date: 20080929
  Transmission Date: 20090506
  Serious: Yes (Hospitalization)
  Sender: FDA-Public Use
  Company Number: US023328

PATIENT
  Age: 65 Year
  Sex: Male
  Weight: 120.2032 kg

DRUGS (1)
  1. PROVIGIL [Suspect]
     Dosage: ORAL
     Route: 048
     Dates: start: 20080301

REACTIONS (1)
  - NODAL RHYTHM [None]
